FAERS Safety Report 7890777-5 (Version None)
Quarter: 2011Q4

REPORT INFORMATION
  Report Type: 
  Country: None (occurrence: None)
  Receive Date: 20111103
  Receipt Date: 20110725
  Transmission Date: 20120403
  Serious: No
  Sender: FDA-Public Use
  Company Number: US-AMGEN-USASP2011038072

PATIENT
  Age: 71 Year
  Sex: Female

DRUGS (2)
  1. METHOTREXATE [Concomitant]
     Dosage: 1 MG, QWK
     Dates: start: 20090101
  2. ENBREL [Suspect]
     Indication: RHEUMATOID ARTHRITIS
     Dosage: 50 MG, QWK
     Dates: start: 20110401

REACTIONS (12)
  - HYPERTENSION [None]
  - OEDEMA MOUTH [None]
  - VASODILATATION [None]
  - VEIN PAIN [None]
  - INJECTION SITE HAEMATOMA [None]
  - COLONIC POLYP [None]
  - INJECTION SITE HAEMORRHAGE [None]
  - UPPER-AIRWAY COUGH SYNDROME [None]
  - STOMATITIS [None]
  - GLOSSODYNIA [None]
  - INJECTION SITE PAIN [None]
  - HERPES ZOSTER [None]
